FAERS Safety Report 6573488-8 (Version None)
Quarter: 2010Q1

REPORT INFORMATION
  Report Type: 
  Country: None (occurrence: None)
  Receive Date: 20100204
  Receipt Date: 20100204
  Transmission Date: 20100710
  Serious: Yes (Other)
  Sender: FDA-Public Use
  Company Number: None

PATIENT
  Sex: Female
  Weight: 58.6 kg

DRUGS (7)
  1. OXALIPLATIN [Suspect]
  2. EPIRUBICIN [Concomitant]
  3. 5FU [Concomitant]
  4. DEXAMETHASONE [Concomitant]
  5. BENADRYL [Concomitant]
  6. KYTRIL [Concomitant]
  7. CHANTIX [Concomitant]

REACTIONS (3)
  - DYSAESTHESIA PHARYNX [None]
  - RESPIRATORY DISTRESS [None]
  - TEMPERATURE INTOLERANCE [None]
